FAERS Safety Report 5907463-0 (Version None)
Quarter: 2008Q4

REPORT INFORMATION
  Report Type: 
  Country: None (occurrence: None)
  Receive Date: 20081003
  Receipt Date: 20080925
  Transmission Date: 20090506
  Serious: Yes (Hospitalization)
  Sender: FDA-Public Use
  Company Number: B0538716A

PATIENT
  Age: 62 Year
  Sex: Male

DRUGS (9)
  1. DEROXAT [Suspect]
     Indication: DRUG USE FOR UNKNOWN INDICATION
     Dosage: 20MG PER DAY
     Route: 048
     Dates: end: 20080823
  2. FLUDEX [Suspect]
     Dosage: 1.5MG PER DAY
     Route: 048
     Dates: end: 20080823
  3. COVERSYL [Concomitant]
     Dosage: 8MG PER DAY
     Route: 048
  4. CORDARONE [Concomitant]
     Dosage: 200MG PER DAY
     Route: 048
  5. TAHOR [Concomitant]
     Dosage: 40MG PER DAY
     Route: 048
  6. LIORESAL [Concomitant]
     Dosage: 20MG TWICE PER DAY
     Route: 048
  7. CALCIPARINE [Concomitant]
     Route: 065
  8. DAFALGAN [Concomitant]
     Route: 065
  9. IXPRIM [Concomitant]
     Route: 065

REACTIONS (13)
  - ACID BASE BALANCE ABNORMAL [None]
  - AGITATION [None]
  - ANAEMIA [None]
  - CONVULSION [None]
  - DISORIENTATION [None]
  - FALL [None]
  - HYPOCHLORAEMIA [None]
  - HYPONATRAEMIA [None]
  - LOSS OF CONSCIOUSNESS [None]
  - MOUTH INJURY [None]
  - NAUSEA [None]
  - URINARY INCONTINENCE [None]
  - VOMITING [None]
